FAERS Safety Report 8657951 (Version 2)
Quarter: 2012Q4

REPORT INFORMATION
  Report Type: 
  Country: US (occurrence: US)
  Receive Date: 20120710
  Receipt Date: 20121102
  Transmission Date: 20130627
  Serious: Yes (Hospitalization)
  Sender: FDA-Public Use
  Company Number: US-BAYER-2012-068008

PATIENT
  Age: 17 Year
  Sex: Female
  Weight: 61.22 kg

DRUGS (3)
  1. YASMIN [Suspect]
     Indication: ACNE
     Dosage: UNK
     Dates: start: 2005, end: 2009
  2. YASMIN [Suspect]
     Indication: PREMENSTRUAL SYNDROME
  3. MINOCYCLINE [Concomitant]
     Dosage: UNK
     Route: 048
     Dates: start: 2003, end: 2005

REACTIONS (5)
  - Gallbladder injury [None]
  - Pain [None]
  - Fear of disease [None]
  - Injury [None]
  - Pain [None]
